FAERS Safety Report 15060625 (Version 1)
Quarter: 2018Q2

REPORT INFORMATION
  Report Type: Spontaneous
  Country: US (occurrence: US)
  Receive Date: 20180625
  Receipt Date: 20180625
  Transmission Date: 20180711
  Serious: Yes (Other)
  Sender: FDA-Public Use
  Company Number: US-PFIZER INC-2018254552

PATIENT
  Age: 46 Year
  Sex: Male

DRUGS (1)
  1. DILANTIN-125 [Suspect]
     Active Substance: PHENYTOIN
     Indication: EPILEPSY
     Dosage: UNK
     Route: 048
     Dates: start: 2010, end: 2015

REACTIONS (1)
  - Cerebellar atrophy [Unknown]

NARRATIVE: CASE EVENT DATE: 201705
